FAERS Safety Report 6340762-X (Version None)
Quarter: 2009Q3

REPORT INFORMATION
  Report Type: 
  Country: None (occurrence: None)
  Receive Date: 20090904
  Receipt Date: 20090826
  Transmission Date: 20100115
  Serious: Yes (Hospitalization)
  Sender: FDA-Public Use
  Company Number: US-ASTRAZENECA-2009SE09961

PATIENT
  Sex: Male

DRUGS (1)
  1. TOPROL-XL [Suspect]
     Route: 048

REACTIONS (5)
  - BLOOD CREATINE INCREASED [None]
  - DRUG DOSE OMISSION [None]
  - HYPERTENSION [None]
  - RENAL IMPAIRMENT [None]
  - VISION BLURRED [None]
